FAERS Safety Report 6699815-9 (Version None)
Quarter: 2010Q2

REPORT INFORMATION
  Report Type: 
  Country: None (occurrence: None)
  Receive Date: 20100428
  Receipt Date: 20090331
  Transmission Date: 20101027
  Serious: No
  Sender: FDA-Public Use
  Company Number: A0829550A

PATIENT
  Age: 38 Year
  Sex: Male
  Weight: 92 kg

DRUGS (1)
  1. LUXIQ [Suspect]
     Indication: TINEA CRURIS
     Dosage: 0PCT TWICE PER DAY
     Route: 061
     Dates: start: 20090310, end: 20090324

REACTIONS (4)
  - APPLICATION SITE NODULE [None]
  - APPLICATION SITE SWELLING [None]
  - OFF LABEL USE [None]
  - PRURITUS [None]
